FAERS Safety Report 8357825-X (Version None)
Quarter: 2012Q2

REPORT INFORMATION
  Report Type: 
  Country: None (occurrence: None)
  Receive Date: 20120514
  Receipt Date: 20110718
  Transmission Date: 20120825
  Serious: Yes (Other)
  Sender: FDA-Public Use
  Company Number: US-ALEXION-A201100289

PATIENT
  Sex: Female

DRUGS (3)
  1. MORPHINE [Concomitant]
     Indication: PAIN
  2. SOLIRIS [Suspect]
     Indication: PAROXYSMAL NOCTURNAL HAEMOGLOBINURIA
     Dosage: UNK
     Route: 042
  3. HYDROMORPHONE HCL [Concomitant]
     Indication: PAIN

REACTIONS (3)
  - BASAL CELL CARCINOMA [None]
  - HAEMOGLOBIN DECREASED [None]
  - ABDOMINAL HERNIA [None]
